FAERS Safety Report 7650674-7 (Version None)
Quarter: 2011Q3

REPORT INFORMATION
  Report Type: 
  Country: None (occurrence: None)
  Receive Date: 20110802
  Receipt Date: 20110726
  Transmission Date: 20111222
  Serious: Yes (Hospitalization)
  Sender: FDA-Public Use
  Company Number: US-US-EMD SERONO, INC.-7044304

PATIENT
  Sex: Female
  Weight: 50 kg

DRUGS (8)
  1. FISH OIL [Concomitant]
     Indication: PROPHYLAXIS
  2. TYLENOL PM [Concomitant]
     Indication: PREMEDICATION
  3. LIPITOR [Concomitant]
     Indication: BLOOD CHOLESTEROL INCREASED
  4. VITAMIN E [Concomitant]
     Indication: PROPHYLAXIS
  5. DETROL LA [Concomitant]
  6. REBIF [Suspect]
     Indication: MULTIPLE SCLEROSIS
     Route: 058
     Dates: start: 20100830, end: 20110117
  7. REBIF [Suspect]
     Route: 058
     Dates: start: 20110202
  8. MIRALAX [Concomitant]
     Indication: CONSTIPATION

REACTIONS (3)
  - INTESTINAL OBSTRUCTION [None]
  - WEIGHT DECREASED [None]
  - INJECTION SITE PAIN [None]
